FAERS Safety Report 10954438 (Version 2)
Quarter: 2015Q2

REPORT INFORMATION
  Report Type: Spontaneous
  Country: US (occurrence: US)
  Receive Date: 20150325
  Receipt Date: 20150602
  Transmission Date: 20150821
  Serious: Yes (Hospitalization, Other)
  Sender: FDA-Public Use
  Company Number: US-GLAXOSMITHKLINE-US2015038365

PATIENT
  Age: 42 Year
  Sex: Female

DRUGS (12)
  1. BENLYSTA [Suspect]
     Active Substance: BELIMUMAB
     Indication: SYSTEMIC LUPUS ERYTHEMATOSUS
     Dosage: 750 MG, U
     Route: 042
     Dates: start: 2011
  2. ALPRAZOLAM. [Concomitant]
     Active Substance: ALPRAZOLAM
  3. BUSPIRONE [Concomitant]
     Active Substance: BUSPIRONE HYDROCHLORIDE
  4. CYCLOPHOSPHAMIDE. [Concomitant]
     Active Substance: CYCLOPHOSPHAMIDE
  5. LEVOTHYROXINE [Concomitant]
     Active Substance: LEVOTHYROXINE
  6. PRILOSEC [Concomitant]
     Active Substance: OMEPRAZOLE MAGNESIUM
  7. FLUOXETINE [Concomitant]
     Active Substance: FLUOXETINE\FLUOXETINE HYDROCHLORIDE
  8. BACLOFEN. [Concomitant]
     Active Substance: BACLOFEN
  9. PREDNISONE. [Concomitant]
     Active Substance: PREDNISONE
  10. FOLIC ACID. [Concomitant]
     Active Substance: FOLIC ACID
  11. PLAQUENIL [Concomitant]
     Active Substance: HYDROXYCHLOROQUINE SULFATE
  12. PREGABALIN. [Concomitant]
     Active Substance: PREGABALIN

REACTIONS (5)
  - Atypical pneumonia [Recovered/Resolved]
  - Lung infection [Unknown]
  - Decreased activity [Unknown]
  - Overdose [Unknown]
  - Systemic lupus erythematosus [Recovering/Resolving]

NARRATIVE: CASE EVENT DATE: 201303
